FAERS Safety Report 5299000-1 (Version None)
Quarter: 2007Q2

REPORT INFORMATION
  Report Type: 
  Country: None (occurrence: None)
  Receive Date: 20070412
  Receipt Date: 20070412
  Transmission Date: 20071010
  Serious: Yes (Other)
  Sender: FDA-Public Use
  Company Number: None

PATIENT
  Age: 39 Year
  Sex: Male
  Weight: 133 kg

DRUGS (3)
  1. RISPERDAL [Suspect]
     Indication: SCHIZOPHRENIA
     Dosage: 4MG QHS PO 2MG QHS PO
     Route: 048
     Dates: start: 20051205, end: 20060505
  2. RISPERDAL [Suspect]
     Indication: SCHIZOPHRENIA
     Dosage: 4MG QHS PO 2MG QHS PO
     Route: 048
     Dates: start: 20060505, end: 20060805
  3. SERTRALINE [Concomitant]

REACTIONS (3)
  - ABNORMAL BEHAVIOUR [None]
  - DIABETES MELLITUS [None]
  - WEIGHT INCREASED [None]
